FAERS Safety Report 16554443 (Version 1)
Quarter: 2019Q3

REPORT INFORMATION
  Report Type: Spontaneous
  Country: US (occurrence: US)
  Receive Date: 20190710
  Receipt Date: 20190710
  Transmission Date: 20191004
  Serious: No
  Sender: FDA-Public Use
  Company Number: US-FRESENIUS KABI-FK201907366

PATIENT
  Age: 35 Year
  Sex: Female

DRUGS (1)
  1. HALOPERIDOL DECANOATE INJECTION [Suspect]
     Active Substance: HALOPERIDOL DECANOATE
     Indication: SCHIZOPHRENIA
     Route: 030
     Dates: start: 2016

REACTIONS (1)
  - Injection site reaction [Recovered/Resolved]
